FAERS Safety Report 13306531 (Version 2)
Quarter: 2017Q1

REPORT INFORMATION
  Report Type: Spontaneous
  Country: ES (occurrence: ES)
  Receive Date: 20170308
  Receipt Date: 20170309
  Transmission Date: 20170428
  Serious: Yes (Other)
  Sender: FDA-Public Use
  Company Number: ES-009507513-1703ESP001739

PATIENT
  Sex: Male

DRUGS (3)
  1. EZETROL [Suspect]
     Active Substance: EZETIMIBE
     Route: 048
  2. ATOZET 10 MG/20 MG COMPRIMIDOS RECUBIERTOS CON PELICULA [Suspect]
     Active Substance: ATORVASTATIN CALCIUM\EZETIMIBE
     Dosage: STRENGTH: 10MG/20MG
     Route: 048
  3. ATORVASTATIN [Suspect]
     Active Substance: ATORVASTATIN

REACTIONS (1)
  - Ocular myasthenia [Unknown]
